FAERS Safety Report 9396578 (Version 1)
Quarter: 2013Q3

REPORT INFORMATION
  Report Type: Spontaneous
  Country: US (occurrence: US)
  Receive Date: 20130711
  Receipt Date: 20130711
  Transmission Date: 20140515
  Serious: Yes (Other)
  Sender: FDA-Public Use
  Company Number: US-ACTAVIS-2013-11937

PATIENT
  Age: 57 Year
  Sex: Female

DRUGS (3)
  1. PACLITAXEL [Suspect]
     Indication: OVARIAN CANCER STAGE IV
     Dosage: 80 MG/M2, 1/WEEK
     Route: 065
     Dates: start: 201201
  2. CARBOPLATIN [Concomitant]
     Indication: OVARIAN CANCER STAGE IV
     Dosage: EVERY 21 DAYS
     Route: 065
  3. BEVACIZUMAB [Concomitant]
     Indication: OVARIAN CANCER STAGE IV
     Dosage: EVERY 3 WEEKS
     Route: 065
     Dates: start: 201201

REACTIONS (4)
  - Nail bed infection [Recovered/Resolved with Sequelae]
  - Nail discolouration [Unknown]
  - Nail dystrophy [Unknown]
  - Onycholysis [Unknown]
